FAERS Safety Report 5944420-2 (Version None)
Quarter: 2008Q4

REPORT INFORMATION
  Report Type: 
  Country: None (occurrence: None)
  Receive Date: 20081107
  Receipt Date: 20081027
  Transmission Date: 20090506
  Serious: Yes (Hospitalization)
  Sender: FDA-Public Use
  Company Number: JP-JNJFOC-20080707422

PATIENT
  Sex: Male
  Weight: 65 kg

DRUGS (19)
  1. REMICADE [Suspect]
     Route: 042
  2. REMICADE [Suspect]
     Route: 042
  3. REMICADE [Suspect]
     Route: 042
  4. REMICADE [Suspect]
     Route: 042
  5. REMICADE [Suspect]
     Indication: BEHCET'S SYNDROME
     Route: 042
  6. PREDONINE [Suspect]
     Route: 048
  7. PREDONINE [Suspect]
     Route: 048
  8. PREDONINE [Suspect]
     Route: 048
  9. PREDONINE [Suspect]
     Route: 048
  10. PREDONINE [Suspect]
     Route: 048
  11. PREDONINE [Suspect]
     Route: 048
  12. PREDONINE [Suspect]
     Route: 048
  13. PREDONINE [Suspect]
     Route: 048
  14. PREDONINE [Suspect]
     Route: 048
  15. PREDONINE [Suspect]
     Route: 048
  16. PREDONINE [Suspect]
     Indication: BEHCET'S SYNDROME
     Route: 048
  17. COLCHICINE [Concomitant]
     Indication: BEHCET'S SYNDROME
     Route: 048
  18. LANSOPRAZOLE [Concomitant]
     Indication: PROPHYLAXIS
     Route: 048
  19. BONALON [Concomitant]
     Indication: PROPHYLAXIS
     Route: 048

REACTIONS (1)
  - GASTROENTERITIS [None]
